FAERS Safety Report 8410817-4 (Version None)
Quarter: 2012Q2

REPORT INFORMATION
  Report Type: 
  Country: None (occurrence: None)
  Receive Date: 20120605
  Receipt Date: 20120601
  Transmission Date: 20120825
  Serious: Yes (Other)
  Sender: FDA-Public Use
  Company Number: AU-PFIZER INC-2012132767

PATIENT
  Age: 27 Year

DRUGS (1)
  1. VARENICLINE TARTRATE [Suspect]
     Dosage: UNK
     Dates: start: 20120512, end: 20120525

REACTIONS (4)
  - HALLUCINATIONS, MIXED [None]
  - PERSONALITY DISORDER [None]
  - MEMORY IMPAIRMENT [None]
  - DIZZINESS [None]
